FAERS Safety Report 9375336 (Version 1)
Quarter: 2013Q2

REPORT INFORMATION
  Report Type: Other
  Country: GB (occurrence: GB)
  Receive Date: 20130628
  Receipt Date: 20130628
  Transmission Date: 20140414
  Serious: Yes (Congenital Anomaly)
  Sender: FDA-Public Use
  Company Number: GB-WATSON-2013-11477

PATIENT
  Sex: 0

DRUGS (1)
  1. CITALOPRAM HYDROBROMIDE (UNKNOWN) [Suspect]
     Indication: ANXIETY
     Dosage: UNK
     Route: 064

REACTIONS (2)
  - Heart disease congenital [Unknown]
  - Foetal exposure during pregnancy [Unknown]
